FAERS Safety Report 9507982 (Version 2)
Quarter: 2013Q4

REPORT INFORMATION
  Report Type: Spontaneous
  Country: MA (occurrence: None)
  Receive Date: 20130905
  Receipt Date: 20131226
  Transmission Date: 20140711
  Serious: Yes (Hospitalization)
  Sender: FDA-Public Use
  Company Number: SYM-2013-10174

PATIENT
  Age: 46 Year
  Sex: Female

DRUGS (3)
  1. FLUOROURACIL [Suspect]
     Indication: BREAST CANCER
  2. CYCLOPHOPHAMIDE [Suspect]
     Indication: INVASIVE DUCTAL BREAST CARCINOMA
  3. DOXORUBICIN (DOXORUBICIN) (DOXORUBICIN) [Suspect]
     Indication: INVASIVE DUCTAL BREAST CARCINOMA

REACTIONS (1)
  - Ischaemic stroke [None]
